FAERS Safety Report 7426964-X (Version None)
Quarter: 2011Q2

REPORT INFORMATION
  Report Type: 
  Country: None (occurrence: None)
  Receive Date: 20110420
  Receipt Date: 20110311
  Transmission Date: 20111010
  Serious: Yes (Hospitalization, Other)
  Sender: FDA-Public Use
  Company Number: US-BAYER-2011-007859

PATIENT
  Sex: Female
  Weight: 67.12 kg

DRUGS (6)
  1. YAZ [Suspect]
     Indication: PRODUCT USED FOR UNKNOWN INDICATION
  2. YASMIN [Suspect]
     Indication: PRODUCT USED FOR UNKNOWN INDICATION
  3. LUNESTA [Concomitant]
  4. OCELLA [Suspect]
  5. IBUPROFEN [Concomitant]
     Dosage: UNK UNK, PRN
  6. WELLBUTRIN [Concomitant]

REACTIONS (4)
  - CHOLECYSTITIS CHRONIC [None]
  - PAIN [None]
  - CHOLECYSTECTOMY [None]
  - KIDNEY INFECTION [None]
